FAERS Safety Report 6447946-0 (Version None)
Quarter: 2009Q4

REPORT INFORMATION
  Report Type: 
  Country: None (occurrence: None)
  Receive Date: 20091120
  Receipt Date: 20091112
  Transmission Date: 20100525
  Serious: Yes (Other)
  Sender: FDA-Public Use
  Company Number: GB-PFIZER INC-2009285768

PATIENT
  Age: 19 Year
  Sex: Female
  Weight: 86 kg

DRUGS (2)
  1. DEPO-PROVERA [Suspect]
     Indication: CONTRACEPTION
     Dosage: 150 MG, EVERY 12 WEEKS
     Route: 030
     Dates: start: 20071212
  2. DEPO-PROVERA [Suspect]
     Dosage: 150 MG, EVERY 12 WEEKS, NEW REGIMEN
     Dates: start: 20090714

REACTIONS (6)
  - CHEST DISCOMFORT [None]
  - ERYTHEMA [None]
  - HEADACHE [None]
  - HYPERTENSION [None]
  - NAUSEA [None]
  - PRURITUS GENERALISED [None]
